FAERS Safety Report 8267209-0 (Version None)
Quarter: 2012Q2

REPORT INFORMATION
  Report Type: 
  Country: None (occurrence: None)
  Receive Date: 20120409
  Receipt Date: 20120402
  Transmission Date: 20120825
  Serious: Yes (Other)
  Sender: FDA-Public Use
  Company Number: US-PFIZER INC-2012061607

PATIENT
  Sex: Male
  Weight: 96.599 kg

DRUGS (14)
  1. CELEBREX [Concomitant]
     Indication: ARTHRITIS
     Dosage: 200 MG
  2. TAMSULOSIN HYDROCHLORIDE [Concomitant]
     Dosage: UNK
  3. COUMADIN [Concomitant]
     Dosage: UNK
  4. LYRICA [Suspect]
     Indication: NEURALGIA
     Dosage: 75 MG, 2X/DAY
     Route: 048
     Dates: start: 20120103, end: 20120104
  5. NORVASC [Concomitant]
     Indication: HYPERTENSION
     Dosage: 5 MG
  6. HYDROCHLOROTHIAZIDE [Concomitant]
     Dosage: UNK
  7. LYRICA [Suspect]
     Dosage: 75 MG, 2X/DAY
     Route: 048
     Dates: start: 20120113, end: 20120114
  8. HYDROCHLOROTHIAZIDE [Concomitant]
     Indication: HYPERTENSION
     Dosage: 25 MG
  9. PAXIL [Concomitant]
     Dosage: 20 MG
  10. WARFARIN [Concomitant]
     Indication: ARTERIAL OCCLUSIVE DISEASE
     Dosage: 2.5 MG
  11. SINGULAIR [Concomitant]
     Dosage: UNK
  12. LYRICA [Suspect]
     Dosage: 50 MG, 2X/DAY
     Route: 048
     Dates: start: 20120104, end: 20120110
  13. COZAAR [Concomitant]
     Dosage: UNK
  14. LIPITOR [Concomitant]
     Indication: BLOOD CHOLESTEROL INCREASED
     Dosage: 20 MG

REACTIONS (3)
  - DYSPNOEA [None]
  - RESPIRATORY TRACT OEDEMA [None]
  - VISION BLURRED [None]
